FAERS Safety Report 10229094 (Version 1)
Quarter: 2014Q2

REPORT INFORMATION
  Report Type: Spontaneous
  Country: GB (occurrence: GB)
  Receive Date: 20140610
  Receipt Date: 20140610
  Transmission Date: 20141212
  Serious: Yes (Life-Threatening)
  Sender: FDA-Public Use
  Company Number: PHHY2014GB068163

PATIENT
  Age: 54 Year
  Sex: Female

DRUGS (2)
  1. MIRTAZAPINE [Suspect]
     Indication: DEPRESSION
     Dosage: 15 MG, UNK
     Route: 048
     Dates: start: 20140428, end: 20140512
  2. CITALOPRAM [Concomitant]
     Dosage: 20 MG, UNK
     Dates: start: 201402, end: 201404

REACTIONS (3)
  - Serotonin syndrome [Recovering/Resolving]
  - Speech disorder [Recovering/Resolving]
  - Myoclonus [Recovering/Resolving]
